FAERS Safety Report 19879631 (Version 1)
Quarter: 2021Q3

REPORT INFORMATION
  Report Type: Spontaneous
  Country: HR (occurrence: HR)
  Receive Date: 20210924
  Receipt Date: 20210924
  Transmission Date: 20211014
  Serious: Yes (Other)
  Sender: FDA-Public Use
  Company Number: HR-PFIZER INC-202101197584

PATIENT
  Age: 63 Year
  Sex: Male

DRUGS (5)
  1. CRESEMBA [Suspect]
     Active Substance: ISAVUCONAZONIUM SULFATE
     Dosage: 200 MG, 1X/DAY
     Route: 042
  2. AMPHOTERICIN B, LIPOSOME [Suspect]
     Active Substance: AMPHOTERICIN B
     Indication: CENTRAL NERVOUS SYSTEM INFECTION
     Dosage: UNK
  3. MEROPENEM. [Suspect]
     Active Substance: MEROPENEM
     Indication: CENTRAL NERVOUS SYSTEM INFECTION
     Dosage: UNK
  4. VANCOMYCIN HCL [Suspect]
     Active Substance: VANCOMYCIN HYDROCHLORIDE
     Indication: CENTRAL NERVOUS SYSTEM INFECTION
     Dosage: UNK
  5. CRESEMBA [Suspect]
     Active Substance: ISAVUCONAZONIUM SULFATE
     Indication: FUNGAL INFECTION
     Dosage: 200 MG, 3X/DAY
     Route: 042

REACTIONS (7)
  - Somnolence [Unknown]
  - Off label use [Unknown]
  - Pyrexia [Unknown]
  - Dysphagia [Unknown]
  - Central nervous system lesion [Unknown]
  - Ataxia [Unknown]
  - Vertigo [Unknown]
